FAERS Safety Report 16725892 (Version 1)
Quarter: 2019Q3

REPORT INFORMATION
  Report Type: Spontaneous
  Country: US (occurrence: US)
  Receive Date: 20190821
  Receipt Date: 20190821
  Transmission Date: 20191005
  Serious: Yes (Other)
  Sender: FDA-Public Use
  Company Number: US-AKORN PHARMACEUTICALS-2019AKN01658

PATIENT
  Sex: Female
  Weight: 49.89 kg

DRUGS (2)
  1. NORGESTIMATE; ETHINYL ESTRADIOL [Concomitant]
     Active Substance: ETHINYL ESTRADIOL\NORGESTIMATE
  2. MYORISAN [Suspect]
     Active Substance: ISOTRETINOIN
     Indication: ACNE
     Dosage: 30 MG, 2X/DAY
     Dates: start: 20190626, end: 20190722

REACTIONS (3)
  - Mood altered [Recovering/Resolving]
  - Fatigue [Recovering/Resolving]
  - Apathy [Recovering/Resolving]

NARRATIVE: CASE EVENT DATE: 2019
